FAERS Safety Report 24637921 (Version 3)
Quarter: 2024Q4

REPORT INFORMATION
  Report Type: Spontaneous
  Country: GB (occurrence: GB)
  Receive Date: 20241119
  Receipt Date: 20241216
  Transmission Date: 20250114
  Serious: Yes (Hospitalization)
  Sender: VERTEX
  Company Number: GB-VERTEX PHARMACEUTICALS-2024-017911

PATIENT
  Age: 36 Year
  Sex: Female

DRUGS (32)
  1. ELEXACAFTOR\IVACAFTOR\TEZACAFTOR [Suspect]
     Active Substance: ELEXACAFTOR\IVACAFTOR\TEZACAFTOR
     Indication: Cystic fibrosis
     Dosage: 75MG IVA / 50MG  TEZA/ 100MG ELEXA (TWO TAB IN AM
     Route: 048
     Dates: start: 20201001
  2. ELEXACAFTOR\IVACAFTOR\TEZACAFTOR [Suspect]
     Active Substance: ELEXACAFTOR\IVACAFTOR\TEZACAFTOR
     Dosage: 1 TABLET ONCE DAILY AS TOLERATED
     Route: 048
     Dates: start: 20230918
  3. ELEXACAFTOR\IVACAFTOR\TEZACAFTOR [Suspect]
     Active Substance: ELEXACAFTOR\IVACAFTOR\TEZACAFTOR
     Dosage: APPROX. 4 DOSES OF KAFTRIO EACH WEEK AT 1 TABLET PER DOSE
     Route: 048
  4. KALYDECO [Suspect]
     Active Substance: IVACAFTOR
     Indication: Cystic fibrosis
     Dosage: ONE TAB IN PM
     Route: 048
     Dates: start: 20201001
  5. TOBRAMYCIN [Suspect]
     Active Substance: TOBRAMYCIN\TOBRAMYCIN SULFATE
     Indication: Infective pulmonary exacerbation of cystic fibrosis
     Dosage: 140 MILLIGRAM, QD
     Dates: start: 20240408, end: 20240419
  6. CALCIUM CARBONATE\CHOLECALCIFEROL [Concomitant]
     Active Substance: CALCIUM CARBONATE\CHOLECALCIFEROL
     Dosage: 2 CAPSULES TWICE DAILY
  7. AZITHROMYCIN [Concomitant]
     Active Substance: AZITHROMYCIN
     Dosage: ON MON, WED, AND FRI
  8. COLOMYCIN [Concomitant]
     Dosage: 2 MU TWICE DAILY ON ALTERNATE MONTHS
     Route: 055
  9. CREON [Concomitant]
     Active Substance: PANCRELIPASE AMYLASE\PANCRELIPASE LIPASE\PANCRELIPASE PROTEASE
     Dosage: 25000 (2-3 WITH SNACKS, 5-8 WITH MEALS)
  10. DIAZEPAM [Concomitant]
     Active Substance: DIAZEPAM
     Dosage: 5 MILLIGRAM, BID
  11. DORNASE ALFA [Concomitant]
     Active Substance: DORNASE ALFA
     Dosage: 2.5 MILLIGRAM, QD
     Route: 055
  12. FERROUS SULFATE [Concomitant]
     Active Substance: FERROUS SULFATE
     Dosage: 200 MG ON ALTERNATE DAYS
  13. FEXOFENADINE [Concomitant]
     Active Substance: FEXOFENADINE HYDROCHLORIDE
     Dosage: 180 MILLIGRAM, QD
  14. FIASP [Concomitant]
     Active Substance: INSULIN ASPART
     Dosage: 8-10 UNITS WITH MEALS
  15. FLUTICASONE PROPIONATE\SALMETEROL XINAFOATE [Concomitant]
     Active Substance: FLUTICASONE PROPIONATE\SALMETEROL XINAFOATE
     Dosage: 50/500 MCG (1 PUFF TWICE DAILY)
  16. INSULIN HUMAN [Concomitant]
     Active Substance: INSULIN HUMAN
     Dosage: 8 UNITS AT NIGHT
  17. HYDROXYCHLOROQUINE [Concomitant]
     Active Substance: HYDROXYCHLOROQUINE
     Dosage: 200 MILLIGRAM, QD
  18. LACTULOSE [Concomitant]
     Active Substance: LACTULOSE
     Dosage: 10 ML, AS REQUIRED
  19. LIDOCAINE [Concomitant]
     Active Substance: LIDOCAINE
     Dosage: 2 PATCHES DAILY TO EACH HIP
     Route: 061
  20. MORPHINE SULFATE [Concomitant]
     Active Substance: MORPHINE SULFATE
     Dosage: 80 MILLIGRAM, BID
  21. NORTRIPTYLINE [Concomitant]
     Active Substance: NORTRIPTYLINE
     Dosage: 20MG, AT NIGHT
  22. OMEPRAZOLE [Concomitant]
     Active Substance: OMEPRAZOLE
     Dosage: 20 MG, QD
  23. PARAVIT CF [Concomitant]
     Dosage: 2 CAPSULES ONCE DAILY
  24. PREGABALIN [Concomitant]
     Active Substance: PREGABALIN
     Dosage: 100 MILLIGRAM, BID
  25. ALBUTEROL [Concomitant]
     Active Substance: ALBUTEROL
     Dosage: 2 PUFFS AS REQUIRED
     Route: 055
  26. ALBUTEROL [Concomitant]
     Active Substance: ALBUTEROL
     Dosage: 5 MG AS REQUIRED - APPROX 3 HOURLY
     Route: 055
  27. SODIUM CHLORIDE [Concomitant]
     Active Substance: SODIUM CHLORIDE
     Dosage: 4 MILLILITER, BID
     Route: 055
  28. TIOTROPIUM [Concomitant]
     Active Substance: TIOTROPIUM
     Dosage: 18 MICROGRAM, QD
  29. TOBRAMYCIN [Concomitant]
     Active Substance: TOBRAMYCIN\TOBRAMYCIN SULFATE
     Dosage: 300 MG TWICE DAILY VIA NEBULISER ON ALTERNATE MONTHS
     Route: 055
  30. CLONAZEPAM [Concomitant]
     Active Substance: CLONAZEPAM
     Indication: Myalgia
     Dosage: IF NEEDED
  31. CLONAZEPAM [Concomitant]
     Active Substance: CLONAZEPAM
     Indication: Muscle spasms
  32. MORPHINE SULFATE [Concomitant]
     Active Substance: MORPHINE SULFATE
     Indication: Pain
     Dosage: 10 MG, AS REQUIRED

REACTIONS (2)
  - Infective pulmonary exacerbation of cystic fibrosis [Recovered/Resolved]
  - Hypoacusis [Recovered/Resolved]

NARRATIVE: CASE EVENT DATE: 20240408
